FAERS Safety Report 15948239 (Version 2)
Quarter: 2019Q1

REPORT INFORMATION
  Report Type: Spontaneous
  Country: DE (occurrence: DE)
  Receive Date: 20190212
  Receipt Date: 20190308
  Transmission Date: 20190417
  Serious: Yes (Life-Threatening, Other)
  Sender: FDA-Public Use
  Company Number: DE-BEH-2019099166

PATIENT
  Age: 71 Year
  Sex: Male

DRUGS (2)
  1. PRIVIGEN [Suspect]
     Active Substance: HUMAN IMMUNOGLOBULIN G
     Dosage: UNK
     Route: 042
     Dates: start: 20181121
  2. PRIVIGEN [Suspect]
     Active Substance: HUMAN IMMUNOGLOBULIN G
     Indication: DECREASED IMMUNE RESPONSIVENESS
     Dosage: UNK
     Route: 042
     Dates: start: 20181011

REACTIONS (11)
  - Erythema [Unknown]
  - Chest discomfort [Unknown]
  - Flushing [Unknown]
  - Psoriasis [Unknown]
  - Headache [Unknown]
  - Diarrhoea [Unknown]
  - Asthenia [Unknown]
  - Pulmonary embolism [Unknown]
  - Pulmonary embolism [Unknown]
  - Psoriasis [Unknown]
  - Chills [Unknown]

NARRATIVE: CASE EVENT DATE: 20181021
